FAERS Safety Report 7146004-X (Version None)
Quarter: 2010Q4

REPORT INFORMATION
  Report Type: 
  Country: None (occurrence: None)
  Receive Date: 20101208
  Receipt Date: 20101130
  Transmission Date: 20110411
  Serious: Yes (Other)
  Sender: FDA-Public Use
  Company Number: BR-US-EMD SERONO, INC.-7008651

PATIENT
  Sex: Male

DRUGS (3)
  1. REBIF [Suspect]
     Indication: RELAPSING-REMITTING MULTIPLE SCLEROSIS
     Route: 058
     Dates: start: 20040701
  2. ENALAPRIL [Concomitant]
  3. METFORMIN [Concomitant]

REACTIONS (5)
  - ABDOMINAL PAIN [None]
  - DYSURIA [None]
  - HAEMORRHAGE URINARY TRACT [None]
  - METASTASIS [None]
  - RENAL CANCER [None]
